FAERS Safety Report 16304170 (Version 1)
Quarter: 2019Q2

REPORT INFORMATION
  Report Type: Spontaneous
  Country: US (occurrence: US)
  Receive Date: 20190513
  Receipt Date: 20190513
  Transmission Date: 20190711
  Serious: No
  Sender: FDA-Public Use
  Company Number: US-SHIRE-US201915500

PATIENT
  Age: 71 Year
  Sex: Female

DRUGS (1)
  1. NATPARA (PARATHYROID HORMONE) [Suspect]
     Active Substance: PARATHYROID HORMONE
     Indication: HYPOPARATHYROIDISM
     Dosage: UNK
     Route: 065

REACTIONS (12)
  - Abdominal pain [Unknown]
  - Fatigue [Unknown]
  - Dysphonia [Unknown]
  - Dry mouth [Unknown]
  - Pollakiuria [Unknown]
  - Headache [Unknown]
  - Depression [Unknown]
  - Dyspnoea [Unknown]
  - Hypertension [Unknown]
  - Pain [Unknown]
  - Oropharyngeal pain [Unknown]
  - Dizziness [Unknown]
